FAERS Safety Report 6124267-7 (Version None)
Quarter: 2009Q1

REPORT INFORMATION
  Report Type: 
  Country: None (occurrence: None)
  Receive Date: 20090319
  Receipt Date: 20090310
  Transmission Date: 20090719
  Serious: Yes (Hospitalization)
  Sender: FDA-Public Use
  Company Number: DE-ASTRAZENECA-2009PK00827

PATIENT
  Age: 75 Year
  Sex: Female
  Weight: 65 kg

DRUGS (10)
  1. OMEPRAZOLE [Interacting]
     Indication: PROPHYLAXIS AGAINST GASTROINTESTINAL ULCER
     Route: 048
     Dates: start: 20040101
  2. CLOBAZAM [Suspect]
     Indication: EPILEPSY
     Route: 048
     Dates: end: 20080907
  3. VALPROAT ^AZUPHARMA^ [Suspect]
     Indication: EPILEPSY
     Route: 048
     Dates: start: 20080401, end: 20080820
  4. VALPROAT ^AZUPHARMA^ [Suspect]
     Route: 048
     Dates: start: 20080820, end: 20080826
  5. VALPROAT ^AZUPHARMA^ [Suspect]
     Route: 048
     Dates: start: 20080826
  6. FENTANYL-25 [Suspect]
     Indication: PAIN
     Dosage: 25UG/H
     Route: 062
     Dates: start: 20070101, end: 20080719
  7. FOSAMAX [Concomitant]
     Indication: OSTEOPOROSIS
     Dosage: EVERY MONDAY
     Route: 048
     Dates: start: 20020101
  8. CALCIUM D3 [Concomitant]
     Indication: OSTEOPOROSIS
     Dosage: 1DF=1000MG CALCIUM + 800IU VITAMIN D3
     Route: 048
     Dates: start: 20020101
  9. FUROSEMIDE [Concomitant]
     Indication: HYPERTENSION
     Route: 048
     Dates: start: 20020101
  10. BISOPROLOL [Concomitant]
     Indication: HYPERTENSION
     Route: 048
     Dates: start: 20000101

REACTIONS (3)
  - DRUG INTERACTION [None]
  - SOMNOLENCE [None]
  - TRANSAMINASES INCREASED [None]
